FAERS Safety Report 9978482 (Version 2)
Quarter: 2014Q1

REPORT INFORMATION
  Report Type: Report from Study
  Country: US (occurrence: US)
  Receive Date: 20140306
  Receipt Date: 20140306
  Transmission Date: 20141002
  Serious: Yes (Other)
  Sender: FDA-Public Use
  Company Number: US-ABBVIE-13P-163-1173249-00

PATIENT
  Sex: Female

DRUGS (7)
  1. HUMIRA [Suspect]
     Indication: CROHN^S DISEASE
     Dates: start: 2009
  2. HUMIRA [Suspect]
  3. HUMIRA [Suspect]
     Dates: start: 2012
  4. HUMIRA [Suspect]
  5. CIMZIA [Suspect]
     Indication: PRODUCT USED FOR UNKNOWN INDICATION
     Dates: end: 2012
  6. CRYSELLE [Suspect]
     Indication: CONTRACEPTION
  7. REMICADE [Suspect]
     Indication: PRODUCT USED FOR UNKNOWN INDICATION
     Dates: start: 2011

REACTIONS (12)
  - Loss of consciousness [Recovered/Resolved]
  - Injection site pain [Unknown]
  - Dyspareunia [Recovered/Resolved]
  - Coital bleeding [Recovered/Resolved]
  - Dysmenorrhoea [Recovered/Resolved]
  - Menorrhagia [Recovered/Resolved]
  - Presyncope [Recovered/Resolved]
  - Drug specific antibody present [Unknown]
  - Psoriasis [Unknown]
  - Drug effect incomplete [Unknown]
  - Crohn^s disease [Unknown]
  - Pain of skin [Unknown]
